FAERS Safety Report 11436759 (Version 2)
Quarter: 2015Q4

REPORT INFORMATION
  Report Type: Report from Study
  Country: VE (occurrence: VE)
  Receive Date: 20150831
  Receipt Date: 20151015
  Transmission Date: 20160304
  Serious: Yes (Other)
  Sender: FDA-Public Use
  Company Number: PHHY2015VE063020

PATIENT
  Age: 21 Year
  Sex: Female

DRUGS (1)
  1. EXJADE [Suspect]
     Active Substance: DEFERASIROX
     Indication: ANAEMIA
     Dosage: 1000 MG, QD
     Route: 048
     Dates: start: 201505

REACTIONS (4)
  - Maternal exposure during pregnancy [Unknown]
  - Haemorrhage [Unknown]
  - Amniotic fluid volume decreased [Unknown]
  - Uterine disorder [Unknown]

NARRATIVE: CASE EVENT DATE: 201505
